FAERS Safety Report 18189961 (Version 2)
Quarter: 2020Q3

REPORT INFORMATION
  Report Type: Report from Study
  Country: None (occurrence: CO)
  Receive Date: 20200825
  Receipt Date: 20200928
  Transmission Date: 20201103
  Serious: Yes (Hospitalization, Other)
  Sender: FDA-Public Use
  Company Number: CO-ABBVIE-20K-036-3536572-00

PATIENT
  Age: 28 Year
  Sex: Female

DRUGS (2)
  1. ZEMPLAR [Suspect]
     Active Substance: PARICALCITOL
     Indication: HYPERPARATHYROIDISM SECONDARY
     Dosage: POST DIALYSIS
     Route: 042
     Dates: start: 20170116, end: 20200723
  2. ZEMPLAR [Suspect]
     Active Substance: PARICALCITOL
     Indication: CHRONIC KIDNEY DISEASE

REACTIONS (16)
  - Venous occlusion [Recovering/Resolving]
  - Asthenia [Recovering/Resolving]
  - Feeling hot [Recovering/Resolving]
  - Headache [Recovering/Resolving]
  - Arthritis [Recovering/Resolving]
  - Inflammation [Unknown]
  - Drowning [Recovering/Resolving]
  - Respiratory distress [Unknown]
  - Inflammation [Recovering/Resolving]
  - Respiratory failure [Recovering/Resolving]
  - Vomiting [Recovering/Resolving]
  - Underweight [Recovering/Resolving]
  - Abdominal pain [Recovering/Resolving]
  - Bone pain [Not Recovered/Not Resolved]
  - Respiratory tract inflammation [Recovering/Resolving]
  - Oxygen saturation decreased [Recovering/Resolving]

NARRATIVE: CASE EVENT DATE: 201908
